FAERS Safety Report 9769355 (Version 1)
Quarter: 2013Q4

REPORT INFORMATION
  Report Type: Report from Study
  Country: FR (occurrence: FR)
  Receive Date: 20131218
  Receipt Date: 20131218
  Transmission Date: 20140711
  Serious: Yes (Death)
  Sender: FDA-Public Use
  Company Number: FR-ASTELLAS-2013US012945

PATIENT
  Sex: 0

DRUGS (4)
  1. ERLOTINIB TABLET [Suspect]
     Indication: BRONCHIOLOALVEOLAR CARCINOMA
     Dosage: 150 MG, UID/QD
     Route: 065
  2. CARBOPLATIN [Suspect]
     Indication: BRONCHIOLOALVEOLAR CARCINOMA
     Dosage: 90 MG/M2, DAY 1, 8, 15 FOUR-WEEKLY
     Route: 065
  3. PACLITAXEL [Suspect]
     Indication: BRONCHIOLOALVEOLAR CARCINOMA
     Dosage: 90 MG/M2, 1,8,15 FOUR-WEEKLY
     Route: 065
  4. PEMETREXED [Suspect]
     Indication: BRONCHIOLOALVEOLAR CARCINOMA
     Dosage: UNK
     Route: 065

REACTIONS (1)
  - Death [Fatal]
